FAERS Safety Report 5283476-X (Version None)
Quarter: 2007Q1

REPORT INFORMATION
  Report Type: 
  Country: None (occurrence: None)
  Receive Date: 20070328
  Receipt Date: 20070328
  Transmission Date: 20070707
  Serious: No
  Sender: FDA-Public Use
  Company Number: None

PATIENT
  Sex: Female

DRUGS (2)
  1. METOCLOPRAMIDE [Suspect]
     Dosage: 5MG QAC + QHS PO
     Route: 048
  2. CARAFATE [Concomitant]

REACTIONS (1)
  - DYSTONIA [None]
